FAERS Safety Report 21388222 (Version 2)
Quarter: 2022Q3

REPORT INFORMATION
  Report Type: Spontaneous
  Country: CN (occurrence: CN)
  Receive Date: 20220928
  Receipt Date: 20220930
  Transmission Date: 20221027
  Serious: Yes (Other)
  Sender: FDA-Public Use
  Company Number: CN-PFIZER INC-PV202200070016

PATIENT
  Age: 78 Year
  Sex: Male

DRUGS (2)
  1. DIFLUCAN [Suspect]
     Active Substance: FLUCONAZOLE
     Indication: Abscess
     Dosage: 200 MG, 1X/DAY
     Route: 048
     Dates: start: 20220907, end: 20220907
  2. MEROPENEM [Suspect]
     Active Substance: MEROPENEM
     Indication: Abscess limb
     Dosage: 500 MG, 1X/DAY
     Route: 041
     Dates: start: 20220910, end: 20220920

REACTIONS (1)
  - Transaminases increased [Recovering/Resolving]

NARRATIVE: CASE EVENT DATE: 20220914
